FAERS Safety Report 7150550-2 (Version None)
Quarter: 2010Q4

REPORT INFORMATION
  Report Type: 
  Country: None (occurrence: None)
  Receive Date: 20101124
  Receipt Date: 20101116
  Transmission Date: 20110411
  Serious: Yes (Hospitalization)
  Sender: FDA-Public Use
  Company Number: 2010AC000573

PATIENT
  Age: 40 Year
  Sex: Male

DRUGS (23)
  1. DIGOXIN [Suspect]
     Dosage: 0.125 MG; QD; PO
     Route: 048
     Dates: start: 20040401, end: 20070501
  2. LOPRESSOR [Concomitant]
  3. DIURETIC [Concomitant]
  4. WARFARIN SODIUM [Concomitant]
  5. TAPAZOLE [Concomitant]
  6. LISINOPRIL [Concomitant]
  7. AMBIEN [Concomitant]
  8. ALBUTEROL [Concomitant]
  9. PAXIL [Concomitant]
  10. LIPITOR [Concomitant]
  11. VERAPAMIL [Concomitant]
  12. IRBESARTAN [Concomitant]
  13. NITROGLYCERIN [Concomitant]
  14. KEFLEX [Concomitant]
  15. MORPHINE [Concomitant]
  16. ZOLOFT [Concomitant]
  17. FLEXERIL [Concomitant]
  18. METHIMAZOLE [Concomitant]
  19. SERTRALINE [Concomitant]
  20. BUSPIRONE [Concomitant]
  21. DIALTIAZEM [Concomitant]
  22. ASPIRIN [Concomitant]
  23. CARDIZEM [Concomitant]

REACTIONS (64)
  - ABDOMINAL PAIN [None]
  - ABDOMINAL PAIN UPPER [None]
  - ACUTE MYOCARDIAL INFARCTION [None]
  - ASTHENIA [None]
  - ATELECTASIS [None]
  - ATRIAL FIBRILLATION [None]
  - ATRIAL SEPTAL DEFECT [None]
  - ATRIOVENTRICULAR BLOCK FIRST DEGREE [None]
  - BACK PAIN [None]
  - BLOOD PRESSURE INADEQUATELY CONTROLLED [None]
  - BLOOD THYROID STIMULATING HORMONE DECREASED [None]
  - BRADYCARDIA [None]
  - CARDIAC FAILURE CONGESTIVE [None]
  - CARDIOACTIVE DRUG LEVEL BELOW THERAPEUTIC [None]
  - CHEST DISCOMFORT [None]
  - CHRONIC OBSTRUCTIVE PULMONARY DISEASE [None]
  - CONVULSION [None]
  - DEPRESSION [None]
  - DIZZINESS [None]
  - DRY MOUTH [None]
  - DYSPNOEA [None]
  - DYSPNOEA EXERTIONAL [None]
  - ECONOMIC PROBLEM [None]
  - ELECTROCARDIOGRAM ST SEGMENT DEPRESSION [None]
  - ELECTROCARDIOGRAM T WAVE INVERSION [None]
  - EMOTIONAL DISORDER [None]
  - ENCEPHALOPATHY [None]
  - FATIGUE [None]
  - GALLBLADDER DISORDER [None]
  - GASTRITIS [None]
  - HEADACHE [None]
  - HEPATIC CYST [None]
  - HYPERHIDROSIS [None]
  - HYPERTENSION [None]
  - HYPOAESTHESIA [None]
  - INFERIOR VENA CAVA DILATATION [None]
  - INTERNATIONAL NORMALISED RATIO INCREASED [None]
  - INTRACARDIAC THROMBUS [None]
  - ISCHAEMIA [None]
  - LACRIMATION INCREASED [None]
  - MALAISE [None]
  - MIGRAINE [None]
  - MITRAL VALVE DISEASE [None]
  - MITRAL VALVE INCOMPETENCE [None]
  - MUSCULOSKELETAL CHEST PAIN [None]
  - MYALGIA [None]
  - NASOPHARYNGITIS [None]
  - NAUSEA [None]
  - OROPHARYNGEAL PAIN [None]
  - PAIN [None]
  - PANCREATIC MASS [None]
  - PERICARDIAL EFFUSION [None]
  - PLEURAL EFFUSION [None]
  - PRESYNCOPE [None]
  - PULMONARY HYPERTENSION [None]
  - PULMONARY VALVE INCOMPETENCE [None]
  - SPLENOMEGALY [None]
  - STRESS [None]
  - SUPRAVENTRICULAR TACHYCARDIA [None]
  - TACHYCARDIA [None]
  - TRICUSPID VALVE INCOMPETENCE [None]
  - VENTRICULAR EXTRASYSTOLES [None]
  - WEIGHT DECREASED [None]
  - WEIGHT INCREASED [None]
